FAERS Safety Report 4731335-0 (Version None)
Quarter: 2005Q3

REPORT INFORMATION
  Report Type: 
  Country: None (occurrence: None)
  Receive Date: 20050802
  Receipt Date: 20050211
  Transmission Date: 20060218
  Serious: Yes (Other)
  Sender: FDA-Public Use
  Company Number: NLWYE373927JAN05

PATIENT
  Sex: Male
  Weight: 85 kg

DRUGS (9)
  1. ENBREL [Suspect]
     Indication: ANKYLOSING SPONDYLITIS
     Route: 058
     Dates: start: 20041213, end: 20050601
  2. ACENOCOUMAROL [Concomitant]
     Dosage: UNKNOWN
  3. BUDESONIDE [Concomitant]
     Indication: CROHN'S DISEASE
     Dosage: UNKNOWN
     Dates: start: 20030801
  4. PANTOPRAZOLE SODIUM [Concomitant]
     Dates: start: 20001115
  5. THYRAX [Concomitant]
     Dosage: 125 MG
  6. ACTONEL (PROCTOR + GAMBLE) [Concomitant]
     Dosage: UNKNOWN
  7. CALCIUM GLUCONATE [Concomitant]
     Dosage: UNKNOWN
  8. ASCORBIC ACID [Concomitant]
     Dosage: UNKNOWN
  9. CYANOCOBALAMIN [Concomitant]

REACTIONS (1)
  - INTERNATIONAL NORMALISED RATIO DECREASED [None]
